FAERS Safety Report 4664250-1 (Version None)
Quarter: 2005Q2

REPORT INFORMATION
  Report Type: 
  Country: None (occurrence: None)
  Receive Date: 20050516
  Receipt Date: 20050516
  Transmission Date: 20051028
  Serious: No
  Sender: FDA-Public Use
  Company Number: None

PATIENT
  Sex: Female

DRUGS (2)
  1. SPIRIVA [Suspect]
     Indication: ASTHMA
     Dosage: 1 TIME PER DAY
  2. SPIRIVA [Suspect]
     Indication: SLEEP APNOEA SYNDROME
     Dosage: 1 TIME PER DAY

REACTIONS (3)
  - ASTHMA [None]
  - SLEEP APNOEA SYNDROME [None]
  - THERAPY NON-RESPONDER [None]
